FAERS Safety Report 4395405-1 (Version None)
Quarter: 2004Q3

REPORT INFORMATION
  Report Type: 
  Country: None (occurrence: None)
  Receive Date: 20040707
  Receipt Date: 20040625
  Transmission Date: 20050211
  Serious: Yes (Death, Hospitalization)
  Sender: FDA-Public Use
  Company Number: 02P-028-0198360-01

PATIENT
  Age: 62 Year
  Sex: Female
  Weight: 64.5 kg

DRUGS (10)
  1. HUMIRA [Suspect]
     Indication: RHEUMATOID ARTHRITIS
     Dosage: 1 IN 2 WK, SUBCUTANEOUS
     Route: 058
     Dates: start: 20010717, end: 20020729
  2. METHOTREXATE [Concomitant]
  3. GLUCOSAMINE [Concomitant]
  4. ESTRADIOL [Concomitant]
  5. CENTRUM [Concomitant]
  6. CALCIUM CARBONATE [Concomitant]
  7. ERGOCALICIFEROL [Concomitant]
  8. FOLIC ACID [Concomitant]
  9. ASCORBIC ACID [Concomitant]
  10. ROFECOXIB [Concomitant]

REACTIONS (13)
  - ALANINE AMINOTRANSFERASE INCREASED [None]
  - ASCITES [None]
  - BLOOD ALBUMIN DECREASED [None]
  - BLOOD ALKALINE PHOSPHATASE INCREASED [None]
  - GASTROINTESTINAL DISORDER [None]
  - INTESTINAL OBSTRUCTION [None]
  - MAMMOGRAM ABNORMAL [None]
  - METASTASIS [None]
  - OEDEMA PERIPHERAL [None]
  - OVARIAN CANCER [None]
  - PERITONEAL CARCINOMA [None]
  - PLEURAL EFFUSION [None]
  - PULMONARY EMBOLISM [None]
